FAERS Safety Report 10067029 (Version 2)
Quarter: 2014Q2

REPORT INFORMATION
  Report Type: Report from Study
  Country: US (occurrence: US)
  Receive Date: 20140409
  Receipt Date: 20140505
  Transmission Date: 20141212
  Serious: Yes (Other)
  Sender: FDA-Public Use
  Company Number: US-BIOGENIDEC-2014BI032110

PATIENT
  Sex: Female
  Weight: 52 kg

DRUGS (16)
  1. AVONEX [Suspect]
     Indication: MULTIPLE SCLEROSIS
     Route: 030
     Dates: start: 20111101, end: 20120527
  2. AVONEX [Suspect]
     Indication: MULTIPLE SCLEROSIS
     Route: 030
     Dates: start: 20130114
  3. CLONAZEPAM [Concomitant]
  4. NEURONTIN [Concomitant]
  5. TYLENOL [Concomitant]
  6. VITAMIN D [Concomitant]
  7. CALCIUM CARBONATE [Concomitant]
  8. ECHINACEA [Concomitant]
  9. FLEXERIL [Concomitant]
  10. BACLOFEN [Concomitant]
  11. FIORICET [Concomitant]
  12. ADVIL [Concomitant]
  13. TIZANIDINE HCL [Concomitant]
  14. TEGRETOL [Concomitant]
  15. COPAXONE [Concomitant]
     Dates: start: 201105
  16. NORTRIPTYLINE [Concomitant]

REACTIONS (17)
  - Migraine [Unknown]
  - Spinal column stenosis [Not Recovered/Not Resolved]
  - Eye allergy [Unknown]
  - Cough [Unknown]
  - Nicotine dependence [Unknown]
  - Medication overuse headache [Unknown]
  - Cervical dysplasia [Not Recovered/Not Resolved]
  - Intervertebral disc disorder [Not Recovered/Not Resolved]
  - Deafness [Unknown]
  - Pain [Not Recovered/Not Resolved]
  - Diarrhoea [Unknown]
  - Arthralgia [Unknown]
  - Anxiety [Unknown]
  - Insomnia [Unknown]
  - Arthritis [Unknown]
  - Drug hypersensitivity [Unknown]
  - Spinal laminectomy [Recovered/Resolved]
